FAERS Safety Report 4714483-0 (Version None)
Quarter: 2005Q3

REPORT INFORMATION
  Report Type: 
  Country: None (occurrence: None)
  Receive Date: 20050714
  Receipt Date: 20050517
  Transmission Date: 20060218
  Serious: Yes (Other)
  Sender: FDA-Public Use
  Company Number: 200514565GDDC

PATIENT
  Sex: Male

DRUGS (2)
  1. LANTUS [Suspect]
     Indication: DIABETES MELLITUS NON-INSULIN-DEPENDENT
     Dosage: DOSE UNIT: UNITS
     Route: 058
  2. NOVORAPID [Concomitant]
     Indication: DIABETES MELLITUS

REACTIONS (3)
  - CARDIAC FAILURE [None]
  - CATARACT [None]
  - DIABETIC ULCER [None]
